FAERS Safety Report 17128389 (Version 2)
Quarter: 2020Q1

REPORT INFORMATION
  Report Type: Spontaneous
  Country: DE (occurrence: DE)
  Receive Date: 20191209
  Receipt Date: 20200102
  Transmission Date: 20200409
  Serious: Yes (Hospitalization)
  Sender: FDA-Public Use
  Company Number: NVSC2019DE061893

PATIENT
  Sex: Male
  Weight: 88 kg

DRUGS (2)
  1. ETORICOXIB. [Concomitant]
     Active Substance: ETORICOXIB
     Indication: PAIN
     Dosage: 30 MG, QD
     Route: 048
     Dates: start: 20180413
  2. COSENTYX [Suspect]
     Active Substance: SECUKINUMAB
     Indication: ANKYLOSING SPONDYLITIS
     Dosage: 150 MG, QMO
     Route: 058
     Dates: start: 20180413

REACTIONS (4)
  - Sensorimotor disorder [Unknown]
  - Brain neoplasm [Unknown]
  - Coordination abnormal [Unknown]
  - Intracranial mass [Unknown]

NARRATIVE: CASE EVENT DATE: 2019
